FAERS Safety Report 18032470 (Version 1)
Quarter: 2020Q3

REPORT INFORMATION
  Report Type: Spontaneous
  Country: FR (occurrence: FR)
  Receive Date: 20200716
  Receipt Date: 20200716
  Transmission Date: 20201103
  Serious: Yes (Other)
  Sender: FDA-Public Use
  Company Number: FR-BRISTOL-MYERS SQUIBB COMPANY-BMS-2020-056094

PATIENT
  Age: 72 Year
  Sex: Female
  Weight: 60.5 kg

DRUGS (2)
  1. HOMEOPATHICS NOS [Concomitant]
     Active Substance: HOMEOPATHICS
     Indication: PRODUCT USED FOR UNKNOWN INDICATION
     Dosage: UNK
     Route: 048
     Dates: end: 202006
  2. ELIQUIS [Suspect]
     Active Substance: APIXABAN
     Indication: CEREBROVASCULAR ACCIDENT PROPHYLAXIS
     Dosage: 5 MILLIGRAM, PER DAY
     Route: 048
     Dates: end: 202006

REACTIONS (3)
  - Electrocardiogram QT prolonged [Recovered/Resolved with Sequelae]
  - Hypokalaemia [Recovered/Resolved]
  - Ventricular tachycardia [Recovered/Resolved with Sequelae]

NARRATIVE: CASE EVENT DATE: 202006
